FAERS Safety Report 18704126 (Version 1)
Quarter: 2021Q1

REPORT INFORMATION
  Report Type: Spontaneous
  Country: US (occurrence: US)
  Receive Date: 20210105
  Receipt Date: 20210105
  Transmission Date: 20210419
  Serious: Yes (Other)
  Sender: FDA-Public Use
  Company Number: US-PFIZER INC-2021002746

PATIENT
  Age: 84 Year
  Sex: Male
  Weight: 66 kg

DRUGS (2)
  1. MORPHINE SULFATE. [Suspect]
     Active Substance: MORPHINE SULFATE
     Dosage: UNK
     Route: 065
  2. ELIQUIS [Suspect]
     Active Substance: APIXABAN
     Dosage: UNAV
     Route: 048
     Dates: start: 20201227

REACTIONS (2)
  - Dementia Alzheimer^s type [Unknown]
  - Cardiac failure [Unknown]

NARRATIVE: CASE EVENT DATE: 20201227
